FAERS Safety Report 9808073 (Version 1)
Quarter: 2014Q1

REPORT INFORMATION
  Report Type: Spontaneous
  Country: FR (occurrence: FR)
  Receive Date: 20140110
  Receipt Date: 20140110
  Transmission Date: 20141002
  Serious: Yes (Hospitalization)
  Sender: FDA-Public Use
  Company Number: FR-GLAXOSMITHKLINE-B0958039A

PATIENT
  Age: 88 Year
  Sex: Female

DRUGS (3)
  1. ALKERAN [Suspect]
     Indication: PLASMA CELL MYELOMA
     Route: 048
     Dates: start: 201304, end: 201308
  2. VELCADE [Suspect]
     Indication: PLASMA CELL MYELOMA
     Route: 042
     Dates: start: 201304, end: 201308
  3. PREDNISOLONE [Suspect]
     Indication: PLASMA CELL MYELOMA
     Route: 048
     Dates: start: 201304, end: 201308

REACTIONS (3)
  - Cholestasis [Recovered/Resolved]
  - Vomiting [Recovered/Resolved]
  - Abdominal pain [Recovered/Resolved]
